FAERS Safety Report 25323271 (Version 1)
Quarter: 2025Q2

REPORT INFORMATION
  Report Type: Spontaneous
  Country: US (occurrence: None)
  Receive Date: 20250515
  Receipt Date: 20250515
  Transmission Date: 20250716
  Serious: Yes (unspecified)
  Sender: FDA-CTU
  Company Number: None

PATIENT
  Age: 70 Year
  Sex: Male

DRUGS (2)
  1. ABIRATERONE ACETATE [Suspect]
     Active Substance: ABIRATERONE ACETATE
     Indication: Prostate cancer
     Dosage: FREQUENCY : DAILY;?
  2. CELEBREX [Suspect]
     Active Substance: CELECOXIB

REACTIONS (7)
  - Cardiac arrest [None]
  - Loss of consciousness [None]
  - Therapy interrupted [None]
  - Throat tightness [None]
  - Asthenia [None]
  - Pain [None]
  - Bone cancer [None]
